FAERS Safety Report 5487202-0 (Version None)
Quarter: 2007Q3

REPORT INFORMATION
  Report Type: 
  Country: None (occurrence: None)
  Receive Date: 20070925
  Receipt Date: 20070620
  Transmission Date: 20080115
  Serious: No
  Sender: FDA-Public Use
  Company Number: 2007US001436

PATIENT
  Age: 77 Year
  Sex: Male

DRUGS (5)
  1. VESICARE [Suspect]
     Indication: HYPERTONIC BLADDER
     Dosage: 5 MG, UID/QD; 5 MG, UID/QD; 10 MG, UID/QD
     Dates: start: 20060105, end: 20060130
  2. VESICARE [Suspect]
     Indication: HYPERTONIC BLADDER
     Dosage: 5 MG, UID/QD; 5 MG, UID/QD; 10 MG, UID/QD
     Dates: start: 20070111, end: 20070601
  3. VESICARE [Suspect]
     Indication: HYPERTONIC BLADDER
     Dosage: 5 MG, UID/QD; 5 MG, UID/QD; 10 MG, UID/QD
     Dates: start: 20060420
  4. ENABLEX [Concomitant]
  5. SINEMET (CARBIDOPA) [Concomitant]

REACTIONS (6)
  - CONSTIPATION [None]
  - DRUG INEFFECTIVE [None]
  - MICTURITION URGENCY [None]
  - NOCTURIA [None]
  - POLLAKIURIA [None]
  - URGE INCONTINENCE [None]
